FAERS Safety Report 8398155-X (Version None)
Quarter: 2012Q2

REPORT INFORMATION
  Report Type: 
  Country: None (occurrence: None)
  Receive Date: 20120531
  Receipt Date: 20120521
  Transmission Date: 20120825
  Serious: Yes (Other)
  Sender: FDA-Public Use
  Company Number: US-SANOFI-AVENTIS-2012SA033117

PATIENT
  Age: 47 Year
  Sex: Male
  Weight: 81.8 kg

DRUGS (2)
  1. ALLEGRA [Suspect]
     Dates: start: 20120417, end: 20120419
  2. ALLEGRA [Suspect]
     Dates: start: 20120417, end: 20120419

REACTIONS (7)
  - PRURITUS [None]
  - SWELLING [None]
  - PAIN [None]
  - TENDERNESS [None]
  - SKIN EXFOLIATION [None]
  - THERMAL BURN [None]
  - BLISTER [None]
